FAERS Safety Report 4967594-9 (Version None)
Quarter: 2006Q2

REPORT INFORMATION
  Report Type: 
  Country: None (occurrence: None)
  Receive Date: 20060407
  Receipt Date: 20060407
  Transmission Date: 20061013
  Serious: Yes (Other)
  Sender: FDA-Public Use
  Company Number: None

PATIENT
  Age: 80 Year
  Sex: Female
  Weight: 93 kg

DRUGS (1)
  1. TAMIFLU [Suspect]
     Indication: INFLUENZA IMMUNISATION
     Dosage: 75 MG -1 CAPSULE-  DAILY    OROPHARINGEAL
     Route: 049
     Dates: start: 20060315, end: 20060324

REACTIONS (6)
  - APHASIA [None]
  - CONVULSION [None]
  - DYSKINESIA [None]
  - MOVEMENT DISORDER [None]
  - MUSCLE RIGIDITY [None]
  - STARING [None]
